FAERS Safety Report 18936666 (Version 2)
Quarter: 2021Q2

REPORT INFORMATION
  Report Type: Spontaneous
  Country: US (occurrence: US)
  Receive Date: 20210225
  Receipt Date: 20210423
  Transmission Date: 20210717
  Serious: Yes (Death)
  Sender: FDA-Public Use
  Company Number: US-COHERUS BIOSCIENCES, INC-2021US001327

PATIENT

DRUGS (6)
  1. OXYCODONE [Concomitant]
     Active Substance: OXYCODONE
     Dosage: UNK, PRN
  2. SPRYCEL [Concomitant]
     Active Substance: DASATINIB
     Dosage: DAILY, PRN
  3. ZOFRAN [Concomitant]
     Active Substance: ONDANSETRON HYDROCHLORIDE
     Dosage: UNK, PRN
  4. MORPHINE [Concomitant]
     Active Substance: MORPHINE
     Dosage: UNK, PRN
  5. UDENYCA [Suspect]
     Active Substance: PEGFILGRASTIM-CBQV
     Indication: INFECTION PROPHYLAXIS
     Dosage: 6 MG, SINGLE
     Route: 058
     Dates: start: 20201221, end: 20201221
  6. TOPOTECAN [Concomitant]
     Active Substance: TOPOTECAN HYDROCHLORIDE
     Dosage: UNK
     Route: 042
     Dates: start: 20201214

REACTIONS (3)
  - Small cell lung cancer [Fatal]
  - Organ failure [Fatal]
  - Insurance issue [None]

NARRATIVE: CASE EVENT DATE: 20200403
